FAERS Safety Report 15948097 (Version 1)
Quarter: 2019Q1

REPORT INFORMATION
  Report Type: Spontaneous
  Country: US (occurrence: US)
  Receive Date: 20190212
  Receipt Date: 20190212
  Transmission Date: 20190417
  Serious: Yes (Hospitalization)
  Sender: FDA-Public Use
  Company Number: None

PATIENT
  Age: 91 Year
  Sex: Male
  Weight: 71.7 kg

DRUGS (3)
  1. ELIQUIS [Suspect]
     Active Substance: APIXABAN
     Route: 048
  2. ASPIRIN 81MG [Concomitant]
     Active Substance: ASPIRIN
  3. ANDEXXA [Suspect]
     Active Substance: ANDEXANET ALFA
     Dates: start: 20180928, end: 20180928

REACTIONS (6)
  - Haemorrhage [None]
  - Platelet dysfunction [None]
  - Fall [None]
  - Pain [None]
  - Skin laceration [None]
  - Loss of consciousness [None]

NARRATIVE: CASE EVENT DATE: 20180927
